FAERS Safety Report 5902204-5 (Version None)
Quarter: 2008Q3

REPORT INFORMATION
  Report Type: 
  Country: None (occurrence: None)
  Receive Date: 20080919
  Receipt Date: 20080730
  Transmission Date: 20090109
  Serious: No
  Sender: FDA-Public Use
  Company Number: US-WYE-H05332808

PATIENT
  Age: 56 Year
  Sex: Male

DRUGS (6)
  1. PRISTIQ [Suspect]
     Indication: DEPRESSION
     Dosage: 50 MG 1X PER 1 DAY, ORAL
     Route: 048
     Dates: start: 20080601
  2. ALLOPURINOL [Concomitant]
  3. ACTOS [Concomitant]
  4. METFORMIN HCL [Concomitant]
  5. ACETYLSALICYLCIC ACID (ACETYLSALICYLIC ACID) [Concomitant]
  6. HYZAAR (HDYROCHLOROTHIAZIDE/LOSARTAN POTASSIUM) [Concomitant]

REACTIONS (10)
  - ANOREXIA [None]
  - DEFAECATION URGENCY [None]
  - DRUG INEFFECTIVE [None]
  - FATIGUE [None]
  - HYPERHIDROSIS [None]
  - HYPOAESTHESIA [None]
  - INSOMNIA [None]
  - NAUSEA [None]
  - RESTLESSNESS [None]
  - THIRST [None]
